FAERS Safety Report 6855170-2 (Version None)
Quarter: 2010Q3

REPORT INFORMATION
  Report Type: 
  Country: None (occurrence: None)
  Receive Date: 20100717
  Receipt Date: 20100320
  Transmission Date: 20110219
  Serious: Yes (Other)
  Sender: FDA-Public Use
  Company Number: US-PFIZER INC-2008004078

PATIENT
  Sex: Female
  Weight: 51.3 kg

DRUGS (14)
  1. CHANTIX [Suspect]
     Indication: SMOKING CESSATION THERAPY
     Dosage: 0.5 MG, 1X/DAY
     Dates: start: 20071225, end: 20071201
  2. CHANTIX [Suspect]
     Dosage: 0.5 MG, 2X/DAY
     Dates: start: 20071201, end: 20071201
  3. CHANTIX [Suspect]
     Dosage: 1 MG, 2X/DAY
     Dates: start: 20071201
  4. GABAPENTIN [Concomitant]
  5. ELMIRON [Concomitant]
     Indication: BLADDER DISORDER
  6. HYDROXYZINE [Concomitant]
  7. CLONAZEPAM [Concomitant]
  8. AMITRIPTYLINE HYDROCHLORIDE [Concomitant]
     Indication: PAIN
  9. CALCIUM [Concomitant]
  10. MAGNESIUM [Concomitant]
  11. VITAMIN B [Concomitant]
  12. VITAMIN C [Concomitant]
  13. FIORICET [Concomitant]
     Indication: MIGRAINE
  14. TIZANIDINE HCL [Concomitant]
     Indication: MUSCLE SPASMS

REACTIONS (4)
  - ADVERSE DRUG REACTION [None]
  - FATIGUE [None]
  - SOMNOLENCE [None]
  - VISUAL IMPAIRMENT [None]
